FAERS Safety Report 8796980 (Version 1)
Quarter: 2012Q4

REPORT INFORMATION
  Report Type: 
  Country: US (occurrence: US)
  Receive Date: 20120919
  Receipt Date: 20120919
  Transmission Date: 20130627
  Serious: Yes (Disabling, Other)
  Sender: FDA-Public Use
  Company Number: US-009507513-1209USA006042

PATIENT

DRUGS (1)
  1. SAPHRIS [Suspect]
     Dosage: 10 mg, UNK
     Route: 048

REACTIONS (3)
  - Convulsion [Unknown]
  - Pain [Unknown]
  - Upper limb fracture [Unknown]
